FAERS Safety Report 8890495 (Version 3)
Quarter: 2013Q1

REPORT INFORMATION
  Report Type: Report from Study
  Country: NZ (occurrence: NZ)
  Receive Date: 20121107
  Receipt Date: 20130107
  Transmission Date: 20140127
  Serious: Yes (Life-Threatening, Hospitalization, Disabling, Other)
  Sender: FDA-Public Use
  Company Number: PHHY2012NZ092002

PATIENT
  Age: 89 None
  Sex: Female
  Weight: 80 kg

DRUGS (5)
  1. CLOZARIL [Suspect]
     Indication: SCHIZOPHRENIA
     Dosage: 57.5 MG, UNK
     Route: 048
     Dates: start: 20000114
  2. CLOZARIL [Suspect]
     Dosage: UNK DOSE REDUCED
  3. CLONAZEPAM [Concomitant]
     Indication: AGITATION
     Dosage: 0.5 MG, MANE
     Route: 048
  4. LACTULOSE [Concomitant]
     Dosage: 20 ML, MANE
     Route: 048
  5. SALBUTAMOL [Concomitant]
     Indication: CHRONIC OBSTRUCTIVE PULMONARY DISEASE
     Dosage: 2 DF, PRN

REACTIONS (12)
  - Fall [Recovering/Resolving]
  - Femoral neck fracture [Recovered/Resolved]
  - Neutrophil count increased [Recovered/Resolved]
  - White blood cell count increased [Recovered/Resolved]
  - Platelet count increased [Recovered/Resolved]
  - Haemoglobin decreased [Recovered/Resolved]
  - Haematocrit decreased [Recovered/Resolved]
  - Mean cell haemoglobin decreased [Unknown]
  - Red blood cell count decreased [Recovered/Resolved]
  - Dementia [Not Recovered/Not Resolved]
  - Chronic obstructive pulmonary disease [Not Recovered/Not Resolved]
  - Urinary tract infection [Recovering/Resolving]
